FAERS Safety Report 13593285 (Version 3)
Quarter: 2017Q2

REPORT INFORMATION
  Report Type: Spontaneous
  Country: US (occurrence: US)
  Receive Date: 20170530
  Receipt Date: 20170615
  Transmission Date: 20170830
  Serious: No
  Sender: FDA-Public Use
  Company Number: US-ASTRAZENECA-2017SE56540

PATIENT
  Sex: Female

DRUGS (5)
  1. PULMICORT FLEXHALER [Suspect]
     Active Substance: BUDESONIDE
     Indication: ASTHMA
     Dosage: TWO PUFFS DAILY
     Route: 055
  2. PULMICORT FLEXHALER [Suspect]
     Active Substance: BUDESONIDE
     Indication: ASTHMA
     Dosage: FOUR PUFFS DAILY (SPLIT 2 AND 2)
     Route: 055
  3. PULMICORT FLEXHALER [Suspect]
     Active Substance: BUDESONIDE
     Indication: ASTHMA
     Dosage: TWO PUFFS TWICE DAILY
     Route: 055
  4. PULMICORT FLEXHALER [Suspect]
     Active Substance: BUDESONIDE
     Indication: ASTHMA
     Dosage: ONE PUFF DAILY
     Route: 055
  5. NARVASC [Concomitant]

REACTIONS (8)
  - Blood pressure increased [Unknown]
  - Nervousness [Unknown]
  - Intentional product misuse [Unknown]
  - Asthma [Unknown]
  - Oropharyngeal pain [Unknown]
  - Off label use [Unknown]
  - Swelling face [Unknown]
  - Anxiety [Unknown]

NARRATIVE: CASE EVENT DATE: 20170516
